FAERS Safety Report 4577981-9 (Version None)
Quarter: 2005Q1

REPORT INFORMATION
  Report Type: 
  Country: None (occurrence: None)
  Receive Date: 20050127
  Receipt Date: 20040921
  Transmission Date: 20050727
  Serious: No
  Sender: FDA-Public Use
  Company Number: USA040876948

PATIENT
  Age: 8 Year
  Sex: Male
  Weight: 30 kg

DRUGS (1)
  1. STRATTERA [Suspect]
     Indication: ATTENTION DEFICIT/HYPERACTIVITY DISORDER
     Dosage: 25 MG DAY
     Dates: start: 20040807

REACTIONS (6)
  - DERMATITIS CONTACT [None]
  - ERYTHEMA [None]
  - EYE SWELLING [None]
  - PRURITUS [None]
  - SWELLING [None]
  - URTICARIA [None]
